FAERS Safety Report 24556344 (Version 2)
Quarter: 2025Q4

REPORT INFORMATION
  Report Type: Spontaneous
  Country: US (occurrence: US)
  Receive Date: 20241028
  Receipt Date: 20251202
  Transmission Date: 20260117
  Serious: Yes (Other)
  Sender: BAYER HEALTHCARE LLC
  Company Number: US-BAYER-2024A152729

PATIENT

DRUGS (1)
  1. AFRIN ORIGINAL NASAL [Suspect]
     Active Substance: OXYMETAZOLINE HYDROCHLORIDE
     Indication: Nasal congestion
     Dosage: UNK
     Route: 045

REACTIONS (1)
  - Drug dependence [Recovered/Resolved]
